FAERS Safety Report 6746510-3 (Version None)
Quarter: 2010Q2

REPORT INFORMATION
  Report Type: 
  Country: None (occurrence: None)
  Receive Date: 20100528
  Receipt Date: 20090422
  Transmission Date: 20101027
  Serious: No
  Sender: FDA-Public Use
  Company Number: US-ASTRAZENECA-2009SE08924

PATIENT
  Age: 83 Year
  Sex: Female

DRUGS (1)
  1. PRILOSEC OTC [Suspect]
     Indication: GASTRIC DISORDER
     Route: 048

REACTIONS (2)
  - FEELING HOT [None]
  - GASTRIC DISORDER [None]
